FAERS Safety Report 4633014-7 (Version None)
Quarter: 2005Q2

REPORT INFORMATION
  Report Type: 
  Country: None (occurrence: None)
  Receive Date: 20050412
  Receipt Date: 20050329
  Transmission Date: 20051028
  Serious: Yes (Other)
  Sender: FDA-Public Use
  Company Number: FR-JNJFOC-20050402096

PATIENT
  Age: 27 Year
  Sex: Male

DRUGS (4)
  1. TOPALGIC [Suspect]
     Indication: CELLULITIS
     Route: 049
  2. TOPALGIC [Suspect]
     Route: 042
  3. AUGMENTIN [Concomitant]
     Route: 065
  4. AUGMENTIN [Concomitant]
     Route: 065

REACTIONS (3)
  - HEMIPARESIS [None]
  - MUSCULAR WEAKNESS [None]
  - TREMOR [None]
